FAERS Safety Report 10101588 (Version 3)
Quarter: 2014Q2

REPORT INFORMATION
  Report Type: Spontaneous
  Country: PL (occurrence: PL)
  Receive Date: 20140424
  Receipt Date: 20140514
  Transmission Date: 20141212
  Serious: Yes (Hospitalization, Other)
  Sender: FDA-Public Use
  Company Number: PL-MPIJNJ-2014JNJ002598

PATIENT
  Sex: 0

DRUGS (4)
  1. VELCADE [Suspect]
     Indication: PLASMA CELL LEUKAEMIA
     Dosage: UNK
     Route: 065
     Dates: start: 201002, end: 201007
  2. VELCADE [Suspect]
     Dosage: UNK
     Route: 058
  3. DEXAMETHASONE [Suspect]
     Indication: PLASMA CELL LEUKAEMIA
     Dosage: UNK
     Route: 065
     Dates: start: 201002
  4. ADRIAMYCIN [Suspect]
     Indication: PLASMA CELL LEUKAEMIA
     Dosage: UNK
     Route: 065
     Dates: start: 201002, end: 201007

REACTIONS (3)
  - Hypercoagulation [Unknown]
  - Polyneuropathy [Unknown]
  - Disease recurrence [Unknown]
